FAERS Safety Report 16066950 (Version 2)
Quarter: 2019Q1

REPORT INFORMATION
  Report Type: Spontaneous
  Country: RO (occurrence: RO)
  Receive Date: 20190313
  Receipt Date: 20190322
  Transmission Date: 20190418
  Serious: Yes (Death, Hospitalization, Other)
  Sender: FDA-Public Use
  Company Number: RO-MYLANLABS-2019M1022814

PATIENT
  Age: 53 Year
  Sex: Female

DRUGS (2)
  1. VANCOMYCIN [Suspect]
     Active Substance: VANCOMYCIN
     Indication: ANTIBIOTIC THERAPY
     Dosage: UNK
  2. CEFTRIAXONE SODIUM. [Suspect]
     Active Substance: CEFTRIAXONE SODIUM
     Indication: ANTIBIOTIC THERAPY
     Dosage: UNK

REACTIONS (10)
  - Anuria [Unknown]
  - Drug ineffective [Fatal]
  - Hepatorenal syndrome [Unknown]
  - Altered state of consciousness [Unknown]
  - Anaemia [Unknown]
  - Coma [Unknown]
  - Leukocytosis [Unknown]
  - Haemodynamic instability [Unknown]
  - Thrombocytopenia [Unknown]
  - Multiple organ dysfunction syndrome [Fatal]
